FAERS Safety Report 10617256 (Version 1)
Quarter: 2014Q4

REPORT INFORMATION
  Report Type: Report from Study
  Country: MX (occurrence: MX)
  Receive Date: 20141201
  Receipt Date: 20141201
  Transmission Date: 20150529
  Serious: Yes (Other)
  Sender: FDA-Public Use
  Company Number: PHHY2014MX156915

PATIENT
  Age: 57 Year
  Sex: Female

DRUGS (2)
  1. DIOVAN [Suspect]
     Active Substance: VALSARTAN
     Indication: HYPERTENSION
     Dosage: 80 MG, QD (DAILY)
     Route: 048
  2. DIOVAN [Suspect]
     Active Substance: VALSARTAN
     Dosage: 160 MG (2 TABLETS OF 80 MG OR 1 TABLET OF 160 MG), QD (DAILY)
     Route: 048
     Dates: start: 201410, end: 201411

REACTIONS (6)
  - Vaginal disorder [Unknown]
  - Hernia [Unknown]
  - Blood pressure increased [Not Recovered/Not Resolved]
  - Drug ineffective [Recovered/Resolved]
  - Stress [Not Recovered/Not Resolved]
  - Oestrogen deficiency [Not Recovered/Not Resolved]
